FAERS Safety Report 11206292 (Version 1)
Quarter: 2015Q2

REPORT INFORMATION
  Report Type: Spontaneous
  Country: CN (occurrence: CN)
  Receive Date: 20150622
  Receipt Date: 20150622
  Transmission Date: 20150821
  Serious: Yes (Death, Life-Threatening)
  Sender: FDA-Public Use
  Company Number: CN-FRESENIUS KABI-FK201502759

PATIENT
  Age: 43 Year
  Sex: Male

DRUGS (2)
  1. DEXAMETHASONE INJECTION (MANUFACTURER UNKNOWN) [Suspect]
     Active Substance: DEXAMETHASONE
     Indication: PAIN
     Route: 041
     Dates: start: 20110903, end: 20110903
  2. CALCIUM GLUCONATE (MANUFACTURER UNKNOWN) [Suspect]
     Active Substance: CALCIUM GLUCONATE
     Indication: PAIN
     Route: 041
     Dates: start: 20110903, end: 20110903

REACTIONS (3)
  - Hypokalaemia [Not Recovered/Not Resolved]
  - Arrhythmia [Fatal]
  - Drug-disease interaction [Fatal]

NARRATIVE: CASE EVENT DATE: 20110903
